FAERS Safety Report 6922254-X (Version None)
Quarter: 2010Q3

REPORT INFORMATION
  Report Type: 
  Country: None (occurrence: None)
  Receive Date: 20100813
  Receipt Date: 20100805
  Transmission Date: 20110219
  Serious: Yes (Hospitalization)
  Sender: FDA-Public Use
  Company Number: US-BIOGENIDEC-2010BI022482

PATIENT
  Age: 38 Year
  Sex: Female
  Weight: 56 kg

DRUGS (23)
  1. TYSABRI [Suspect]
     Indication: MULTIPLE SCLEROSIS
     Dates: start: 20071026
  2. OXYCODONE HCL AND ACETAMINOPHEN [Concomitant]
     Indication: PAIN
  3. PROVIGIL [Concomitant]
  4. PROVIGIL [Concomitant]
  5. SIMVASTATIN [Concomitant]
  6. MELOXICAM [Concomitant]
  7. CYCLOBENZAPRINE [Concomitant]
  8. FLONASE [Concomitant]
     Route: 045
  9. OMEPRAZOLE [Concomitant]
  10. DEPO-PROVERA [Concomitant]
     Route: 030
  11. CITALOPRAM [Concomitant]
  12. VESICARE [Concomitant]
  13. CLONAZEPAM [Concomitant]
  14. IMITREX [Concomitant]
  15. MECLIZINE [Concomitant]
  16. VITAMIN AND MINERAL PRENATAL SUPPLEMENT W/ FOLIC ACID CAP [Concomitant]
  17. ZYRTEC [Concomitant]
  18. SUDAFED 12 HOUR [Concomitant]
  19. CALCIUM CITRATE WITH VITAMIN D [Concomitant]
  20. RECLAST [Concomitant]
  21. FISH OIL [Concomitant]
  22. MAGNESIUM [Concomitant]
  23. VITAMIN B COMPLEX CAP [Concomitant]

REACTIONS (10)
  - ATTENTION DEFICIT/HYPERACTIVITY DISORDER [None]
  - DIZZINESS [None]
  - HAEMORRHOIDS [None]
  - INCISION SITE PAIN [None]
  - MOVEMENT DISORDER [None]
  - PARESIS ANAL SPHINCTER [None]
  - POSTOPERATIVE WOUND INFECTION [None]
  - RECTAL POLYP [None]
  - RECTAL PROLAPSE [None]
  - TREMOR [None]
